FAERS Safety Report 5725167-4 (Version None)
Quarter: 2008Q2

REPORT INFORMATION
  Report Type: 
  Country: None (occurrence: None)
  Receive Date: 20080501
  Receipt Date: 20080416
  Transmission Date: 20081010
  Serious: Yes (Death, Hospitalization, Congenital Anomaly)
  Sender: FDA-Public Use
  Company Number: A0690849A

PATIENT
  Sex: Male
  Weight: 3.8 kg

DRUGS (5)
  1. PAXIL [Suspect]
     Indication: DEPRESSION
     Dosage: 20MG PER DAY
     Dates: start: 20010601, end: 20031201
  2. PAROXETINE HCL [Suspect]
     Indication: DEPRESSION
     Dosage: 20MG PER DAY
     Dates: start: 20030101
  3. VITAMIN TAB [Concomitant]
  4. REGLAN [Concomitant]
     Dates: start: 20031201, end: 20040901
  5. TYLENOL [Concomitant]
     Dates: start: 20031201, end: 20040901

REACTIONS (11)
  - ATRIAL SEPTAL DEFECT [None]
  - CONGENITAL ANOMALY [None]
  - CONGENITAL AORTIC ATRESIA [None]
  - DRUG EXPOSURE DURING PREGNANCY [None]
  - HYPOPLASTIC LEFT HEART SYNDROME [None]
  - HYPOXIA [None]
  - METABOLIC ACIDOSIS [None]
  - MITRAL VALVE STENOSIS [None]
  - OBSTRUCTIVE AIRWAYS DISORDER [None]
  - PATENT DUCTUS ARTERIOSUS [None]
  - PERICARDIAL EFFUSION [None]
